FAERS Safety Report 21303100 (Version 6)
Quarter: 2023Q2

REPORT INFORMATION
  Report Type: Other
  Country: IT (occurrence: None)
  Receive Date: 20220907
  Receipt Date: 20230425
  Transmission Date: 20230721
  Serious: Yes (Hospitalization, Other)
  Sender: FDA-Public Use
  Company Number: IT-ROCHE-2704595

PATIENT
  Age: 40 Year
  Sex: Female

DRUGS (6)
  1. OBINUTUZUMAB [Suspect]
     Active Substance: OBINUTUZUMAB
     Indication: Follicular lymphoma
     Dosage: ON DAY 1, 8, 15 OF CYCLE 1 AN DAY 1 OF CYCLES 2-6 OR 2-8. MAINTENANCE PHASE: 1000 MG IV EVERY 2 MONT
     Route: 042
     Dates: start: 20191204
  2. OBINUTUZUMAB [Suspect]
     Active Substance: OBINUTUZUMAB
     Route: 042
     Dates: start: 20191129
  3. CYCLOPHOSPHAMIDE [Suspect]
     Active Substance: CYCLOPHOSPHAMIDE
     Indication: Product used for unknown indication
     Dosage: RECEIVED 6 INDUCTION CYCLES OF G-CHOP
     Route: 065
  4. DOXORUBICIN [Suspect]
     Active Substance: DOXORUBICIN
     Indication: Product used for unknown indication
     Dosage: RECEIVED 6 INDUCTION CYCLES OF G-CHOP
     Route: 065
  5. VINCRISTINE [Suspect]
     Active Substance: VINCRISTINE
     Indication: Product used for unknown indication
     Dosage: RECEIVED 6 INDUCTION CYCLES OF G-CHOP
     Route: 065
  6. PREDNISONE [Suspect]
     Active Substance: PREDNISONE
     Indication: Product used for unknown indication
     Dosage: RECEIVED 6 INDUCTION CYCLES OF G-CHOP
     Route: 065

REACTIONS (7)
  - Amenorrhoea [Recovered/Resolved]
  - Respiratory tract infection [Recovered/Resolved]
  - Neutropenia [Recovered/Resolved]
  - Neutropenia [Not Recovered/Not Resolved]
  - Lymphocyte count decreased [Recovered/Resolved]
  - Pyrexia [Recovered/Resolved]
  - Hypogammaglobulinaemia [Recovered/Resolved]

NARRATIVE: CASE EVENT DATE: 20191212
